FAERS Safety Report 6654632-0 (Version None)
Quarter: 2010Q1

REPORT INFORMATION
  Report Type: 
  Country: None (occurrence: None)
  Receive Date: 20100326
  Receipt Date: 20100106
  Transmission Date: 20100710
  Serious: Yes (Other)
  Sender: FDA-Public Use
  Company Number: PHHY2010TW15593

PATIENT

DRUGS (1)
  1. TASIGNA [Suspect]
     Dosage: UNK
     Dates: start: 20090801

REACTIONS (7)
  - ABDOMINAL DISCOMFORT [None]
  - ABDOMINAL PAIN [None]
  - DYSPNOEA [None]
  - HERNIA [None]
  - MALIGNANT NEOPLASM PROGRESSION [None]
  - PALPITATIONS [None]
  - PYREXIA [None]
